FAERS Safety Report 15240186 (Version 3)
Quarter: 2018Q4

REPORT INFORMATION
  Report Type: Spontaneous
  Country: PT (occurrence: PT)
  Receive Date: 20180803
  Receipt Date: 20181017
  Transmission Date: 20190204
  Serious: Yes (Hospitalization, Other)
  Sender: FDA-Public Use
  Company Number: PT-AUROBINDO-AUR-APL-2018-019691

PATIENT
  Age: 51 Year
  Sex: Female

DRUGS (22)
  1. OXALIPLATIN. [Suspect]
     Active Substance: OXALIPLATIN
     Indication: HEPATIC FUNCTION ABNORMAL
  2. FLUOROURACIL. [Suspect]
     Active Substance: FLUOROURACIL
     Dosage: BOLUS AND 46 HOURS CONTINUOUS INFUSION (400 MG/M^2+2400 MG/M^2) EVERY 15 DAYS THROUGH A CENTRAL V...
     Route: 041
  3. FLUOROURACIL. [Suspect]
     Active Substance: FLUOROURACIL
     Dosage: BOLUS AND 46 HOURS CONTINUOUS INFUSION (400 MG/M^2+2400 MG/M^2) EVERY 15 DAYS THROUGH A CENTRAL V...
     Route: 040
  4. FLUOROURACIL. [Suspect]
     Active Substance: FLUOROURACIL
     Dosage: BOLUS AND 46 HOURS CONTINUOUS INFUSION (400 MG/M^2+2400 MG/M^2) EVERY 15 DAYS THROUGH A CENTRAL V...
     Route: 040
  5. OXALIPLATIN. [Suspect]
     Active Substance: OXALIPLATIN
     Indication: ADENOCARCINOMA OF COLON
     Dosage: 85 MILLIGRAM/SQ. METER
     Route: 065
  6. CETUXIMAB. [Suspect]
     Active Substance: CETUXIMAB
     Indication: METASTASES TO LIVER
  7. ONDANSETRON [Concomitant]
     Active Substance: ONDANSETRON
     Indication: NAUSEA
     Dosage: UNK
     Route: 065
  8. HYDROCHLOROTHIAZIDE. [Concomitant]
     Active Substance: HYDROCHLOROTHIAZIDE
     Indication: PRODUCT USED FOR UNKNOWN INDICATION
     Dosage: UNK, UNKNOWN ()
     Route: 065
  9. CETUXIMAB. [Suspect]
     Active Substance: CETUXIMAB
     Indication: ADENOCARCINOMA OF COLON
     Dosage: ()CYCLICAL
     Route: 065
  10. OXALIPLATIN. [Suspect]
     Active Substance: OXALIPLATIN
     Indication: METASTASES TO LIVER
  11. FOLINIC ACID [Suspect]
     Active Substance: LEUCOVORIN
     Indication: METASTASES TO LIVER
     Dosage: ()
     Route: 065
  12. FLUOROURACIL. [Suspect]
     Active Substance: FLUOROURACIL
     Indication: METASTASES TO LIVER
     Dosage: 6400 MILLIGRAM/SQ. METER
     Route: 042
  13. FLUOROURACIL. [Suspect]
     Active Substance: FLUOROURACIL
     Indication: ADENOCARCINOMA OF COLON
     Dosage: BOLUS AND 46 HOURS CONTINUOUS INFUSION (400 MG/M^2+2400 MG/M^2) EVERY 15 DAYS THROUGH A CENTRAL V...
     Route: 040
  14. FLUOROURACIL. [Suspect]
     Active Substance: FLUOROURACIL
     Dosage: BOLUS AND 46 HOURS CONTINUOUS INFUSION (400 MG/M^2+2400 MG/M^2) EVERY 15 DAYS THROUGH A CENTRAL V...
     Route: 041
  15. FLUOROURACIL. [Suspect]
     Active Substance: FLUOROURACIL
     Dosage: BOLUS AND 46 HOURS CONTINUOUS INFUSION (400 MG/M^2+2400 MG/M^2) EVERY 15 DAYS THROUGH A CENTRAL V...
     Route: 040
  16. FOLINIC ACID [Suspect]
     Active Substance: LEUCOVORIN
     Indication: ADENOCARCINOMA OF COLON
     Dosage: ()CYCLICAL
  17. FOLINIC ACID [Suspect]
     Active Substance: LEUCOVORIN
     Dosage: ()CYCLICAL
  18. FLUOROURACIL. [Suspect]
     Active Substance: FLUOROURACIL
     Dosage: BOLUS AND 46 HOURS CONTINUOUS INFUSION (400 MG/M^2+2400 MG/M^2) EVERY 15 DAYS THROUGH A CENTRAL V...
     Route: 041
  19. FLUOROURACIL. [Suspect]
     Active Substance: FLUOROURACIL
     Dosage: BOLUS AND 46 HOURS CONTINUOUS INFUSION (400 MG/M^2+2400 MG/M^2) EVERY 15 DAYS THROUGH A CENTRAL V...
     Route: 040
  20. CALCIUM FOLINATE W/FLUOROURACIL/OXALIPLATIN [Concomitant]
     Indication: PRODUCT USED FOR UNKNOWN INDICATION
     Dosage: 8 5 MG/M2 ()
     Route: 042
  21. ALLOPURINOL. [Suspect]
     Active Substance: ALLOPURINOL
     Indication: TUMOUR LYSIS SYNDROME
     Dosage: 100 MG, 24 HOUR
     Route: 065
  22. FLUOROURACIL. [Suspect]
     Active Substance: FLUOROURACIL
     Dosage: BOLUS AND 46 HOURS CONTINUOUS INFUSION (400 MG/M^2+2400 MG/M^2) EVERY 15 DAYS THROUGH A CENTRAL V...
     Route: 040

REACTIONS (9)
  - Drug hypersensitivity [Recovered/Resolved]
  - Hypersensitivity vasculitis [Recovered/Resolved]
  - Tumour lysis syndrome [Recovered/Resolved]
  - Nausea [Recovered/Resolved]
  - Acute kidney injury [Unknown]
  - Petechiae [Recovered/Resolved]
  - Product use in unapproved indication [Unknown]
  - Skin toxicity [Unknown]
  - Hyperkalaemia [Unknown]
